FAERS Safety Report 4951986-8 (Version None)
Quarter: 2006Q1

REPORT INFORMATION
  Report Type: 
  Country: None (occurrence: None)
  Receive Date: 20060320
  Receipt Date: 20060306
  Transmission Date: 20060701
  Serious: Yes (Other)
  Sender: FDA-Public Use
  Company Number: 008-20785-06030515

PATIENT
  Age: 57 Year
  Sex: Male

DRUGS (3)
  1. THALIDOMIDE                       (THALIDOMIDE) [Suspect]
     Indication: MULTIPLE MYELOMA
     Dosage: ORAL
     Route: 048
  2. DEXAMETHASONE [Concomitant]
  3. PAMIDRONATE DISODIUM [Concomitant]

REACTIONS (10)
  - BLOOD PARATHYROID HORMONE INCREASED [None]
  - DRUG TOXICITY [None]
  - ELECTROCARDIOGRAM QT PROLONGED [None]
  - HYPOCALCAEMIA [None]
  - HYPOMAGNESAEMIA [None]
  - PARAESTHESIA [None]
  - RENAL IMPAIRMENT [None]
  - TETANY [None]
  - TUBULOINTERSTITIAL NEPHRITIS [None]
  - URINARY CASTS [None]
